FAERS Safety Report 9838441 (Version 1)
Quarter: 2013Q4

REPORT INFORMATION
  Report Type: Spontaneous
  Country: US (occurrence: None)
  Receive Date: 20131206
  Receipt Date: 20131206
  Transmission Date: 20140711
  Serious: Yes (Other)
  Sender: FDA-Public Use
  Company Number: 377972

PATIENT
  Age: 63 Year
  Sex: Male

DRUGS (11)
  1. NOVOLOG [Suspect]
     Indication: TYPE 2 DIABETES MELLITUS
     Dosage: 5 U SINGLE DOSE (50 CARBS)
     Route: 058
  2. LANTUS (INSULIN GARGLINE) [Concomitant]
  3. COLACE [Concomitant]
  4. VYTORIN (EZETIMIBE, SIMVASTATIN) [Concomitant]
  5. AVANDIA (ROSGLITAZONE MALEATE) [Concomitant]
  6. ECOTRIN (ACETYLSALICYLIC ACID) [Concomitant]
  7. POTASSIUM (POTASSIUM) [Concomitant]
  8. LOPRESSOR (METOPROLOL TARTRATE) [Concomitant]
  9. IRON (IRON) [Concomitant]
  10. PEPCID /00706001/ (FAMOTIDINE) [Concomitant]
  11. LEXAPRO (ESCITALOPRAM OXALATE) [Concomitant]

REACTIONS (2)
  - Blood glucose increased [None]
  - Feeling abnormal [None]
